FAERS Safety Report 21752808 (Version 1)
Quarter: 2022Q4

REPORT INFORMATION
  Report Type: Report from Study
  Country: US (occurrence: US)
  Receive Date: 20221220
  Receipt Date: 20221220
  Transmission Date: 20230113
  Serious: No
  Sender: FDA-Public Use
  Company Number: US-ABBVIE-4197712

PATIENT
  Age: 36 Year
  Sex: Male

DRUGS (1)
  1. HUMIRA [Suspect]
     Active Substance: ADALIMUMAB
     Indication: Colitis ulcerative
     Dosage: CF, 1ST DAY (LOADING DOSE)
     Route: 058
     Dates: start: 20221110, end: 20221110

REACTIONS (3)
  - Cough [Recovered/Resolved]
  - Respiratory tract congestion [Recovered/Resolved]
  - Upper-airway cough syndrome [Unknown]

NARRATIVE: CASE EVENT DATE: 20221110
